FAERS Safety Report 20612748 (Version 2)
Quarter: 2022Q2

REPORT INFORMATION
  Report Type: Spontaneous
  Country: NL (occurrence: NL)
  Receive Date: 20220318
  Receipt Date: 20220409
  Transmission Date: 20220721
  Serious: Yes (Other)
  Sender: FDA-Public Use
  Company Number: NL-TEVA-2022-NL-2016887

PATIENT
  Sex: Female
  Weight: 60 kg

DRUGS (3)
  1. CARBIDOPA\LEVODOPA [Suspect]
     Active Substance: CARBIDOPA\LEVODOPA
     Indication: Insomnia
     Dosage: LEVODOPA 100MG+ CARBIDOPA 25MG
     Route: 065
     Dates: start: 20220303, end: 20220304
  2. CARBIDOPA\LEVODOPA [Suspect]
     Active Substance: CARBIDOPA\LEVODOPA
     Indication: Tremor
  3. SINEMET [Concomitant]
     Active Substance: CARBIDOPA\LEVODOPA
     Indication: Parkinson^s disease
     Dosage: 62.5 TABLETS 50/12 MG FOR YEARS, 2 IN THE AFTERNOON AND 2 IN THE EVENING
     Route: 065
     Dates: start: 2011

REACTIONS (6)
  - Hallucination [Unknown]
  - Depressed mood [Unknown]
  - Drug ineffective [Unknown]
  - Adverse event [Unknown]
  - Restlessness [Unknown]
  - Panic reaction [Unknown]
